FAERS Safety Report 7106745-7 (Version None)
Quarter: 2010Q4

REPORT INFORMATION
  Report Type: 
  Country: None (occurrence: None)
  Receive Date: 20101116
  Receipt Date: 20101026
  Transmission Date: 20110411
  Serious: No
  Sender: FDA-Public Use
  Company Number: US-ABBOTT-10P-163-0681362-00

PATIENT
  Sex: Male
  Weight: 72.64 kg

DRUGS (5)
  1. SIMCOR [Suspect]
     Indication: DYSLIPIDAEMIA
     Dosage: 500/40MG AT BEDTIME
     Route: 048
     Dates: start: 20100926, end: 20101010
  2. SIMCOR [Suspect]
     Dosage: 500/40MG; 2 AT BEDTIME
     Route: 048
  3. LOVAZA [Concomitant]
     Indication: PRODUCT USED FOR UNKNOWN INDICATION
     Route: 048
  4. BENAZAPRIL [Concomitant]
     Indication: PRODUCT USED FOR UNKNOWN INDICATION
     Route: 048
  5. ASPIRIN [Concomitant]
     Indication: PRODUCT USED FOR UNKNOWN INDICATION
     Dosage: PRIOR TO SIMCOR
     Route: 048

REACTIONS (2)
  - DIARRHOEA [None]
  - MUSCULAR WEAKNESS [None]
